FAERS Safety Report 4824567-4 (Version None)
Quarter: 2005Q4

REPORT INFORMATION
  Report Type: 
  Country: None (occurrence: None)
  Receive Date: 20051108
  Receipt Date: 20051020
  Transmission Date: 20060501
  Serious: Yes (Death)
  Sender: FDA-Public Use
  Company Number: DE_051117458

PATIENT
  Sex: Male

DRUGS (2)
  1. GEMZAR [Suspect]
     Indication: NON-SMALL CELL LUNG CANCER
     Dates: start: 20050606
  2. CISPLATIN [Concomitant]

REACTIONS (8)
  - ATRIAL FIBRILLATION [None]
  - NAUSEA [None]
  - PNEUMONIA [None]
  - POST PROCEDURAL COMPLICATION [None]
  - PULMONARY EMBOLISM [None]
  - RADIATION PNEUMONITIS [None]
  - TACHYCARDIA [None]
  - VOMITING [None]
